FAERS Safety Report 24812726 (Version 2)
Quarter: 2025Q1

REPORT INFORMATION
  Report Type: Report from Study
  Country: CA (occurrence: CA)
  Receive Date: 20250107
  Receipt Date: 20250116
  Transmission Date: 20250409
  Serious: Yes (Death)
  Sender: ABBVIE
  Company Number: CA-ABBVIE-6050392

PATIENT
  Age: 79 Year
  Sex: Female
  Weight: 37.19 kg

DRUGS (2)
  1. VYALEV [Suspect]
     Active Substance: FOSCARBIDOPA\FOSLEVODOPA
     Indication: Product used for unknown indication
     Route: 058
     Dates: start: 20241203, end: 20241208
  2. VYALEV [Suspect]
     Active Substance: FOSCARBIDOPA\FOSLEVODOPA
     Route: 058
     Dates: start: 20241213

REACTIONS (9)
  - Pneumonia [Fatal]
  - Parkinson^s disease [Unknown]
  - Device dislocation [Unknown]
  - On and off phenomenon [Unknown]
  - Depression [Unknown]
  - Catheter site induration [Unknown]
  - Scar [Unknown]
  - Hallucination [Unknown]
  - Malabsorption from administration site [Unknown]

NARRATIVE: CASE EVENT DATE: 20241201
